FAERS Safety Report 9366186 (Version 1)
Quarter: 2013Q2

REPORT INFORMATION
  Report Type: Spontaneous
  Country: US (occurrence: US)
  Receive Date: 20130625
  Receipt Date: 20130625
  Transmission Date: 20140414
  Serious: Yes (Death, Other)
  Sender: FDA-Public Use
  Company Number: US-ASTELLAS-2013US006341

PATIENT
  Age: 70 Year
  Sex: Female

DRUGS (1)
  1. MYCAMINE [Suspect]
     Indication: CANDIDA INFECTION
     Dosage: 100 MG, UNKNOWN/D
     Route: 042

REACTIONS (5)
  - Haemorrhage [Fatal]
  - Haematuria [Unknown]
  - Haemolysis [Fatal]
  - Tremor [Fatal]
  - Chills [Fatal]
